FAERS Safety Report 8839279 (Version 1)
Quarter: 2012Q4

REPORT INFORMATION
  Report Type: 
  Country: US (occurrence: US)
  Receive Date: 20121015
  Receipt Date: 20121015
  Transmission Date: 20130627
  Serious: Yes (Hospitalization)
  Sender: FDA-Public Use
  Company Number: US-JNJFOC-20121004972

PATIENT
  Sex: Female

DRUGS (2)
  1. INVEGA SUSTENNA [Suspect]
     Indication: PRODUCT USED FOR UNKNOWN INDICATION
     Dosage: second dose of 156 mg received on 21-SEP-2012
     Route: 030
     Dates: start: 20120921
  2. INVEGA SUSTENNA [Suspect]
     Indication: PRODUCT USED FOR UNKNOWN INDICATION
     Dosage: second dose of 156 mg received on 21-SEP-2012
     Route: 030

REACTIONS (3)
  - Neuroleptic malignant syndrome [Recovering/Resolving]
  - Urinary tract infection [Unknown]
  - Pyrexia [Unknown]
